FAERS Safety Report 17202957 (Version 1)
Quarter: 2019Q4

REPORT INFORMATION
  Report Type: Report from Study
  Country: JP (occurrence: JP)
  Receive Date: 20191226
  Receipt Date: 20191226
  Transmission Date: 20200122
  Serious: Yes (Hospitalization, Disabling, Other)
  Sender: FDA-Public Use
  Company Number: JP-TAKEDA-2019TUS073539

PATIENT
  Age: 82 Year
  Sex: Female
  Weight: 54 kg

DRUGS (4)
  1. PONATINIB [Suspect]
     Active Substance: PONATINIB
     Indication: ACUTE LYMPHOCYTIC LEUKAEMIA
     Dosage: 15 MILLIGRAM, QD
     Route: 048
     Dates: start: 20170913
  2. PREDNISOLONE. [Concomitant]
     Active Substance: PREDNISOLONE
     Indication: ACUTE LYMPHOCYTIC LEUKAEMIA
     Dosage: UNK
     Route: 065
     Dates: start: 20170707, end: 20171030
  3. PONATINIB [Suspect]
     Active Substance: PONATINIB
     Dosage: 15 MILLIGRAM, QD
     Route: 048
     Dates: start: 20170920, end: 20190325
  4. BAYASPIRIN [Concomitant]
     Active Substance: ASPIRIN
     Indication: PROPHYLAXIS
     Dosage: UNK
     Route: 065
     Dates: start: 20171226, end: 20190401

REACTIONS (1)
  - Cerebral infarction [Recovered/Resolved with Sequelae]

NARRATIVE: CASE EVENT DATE: 20190325
